FAERS Safety Report 5705733-2 (Version None)
Quarter: 2008Q2

REPORT INFORMATION
  Report Type: 
  Country: None (occurrence: None)
  Receive Date: 20080411
  Receipt Date: 20080402
  Transmission Date: 20081010
  Serious: Yes (Other)
  Sender: FDA-Public Use
  Company Number: 237102K07USA

PATIENT
  Age: 70 Year
  Sex: Male

DRUGS (14)
  1. REBIF [Suspect]
     Indication: MULTIPLE SCLEROSIS
     Dosage: 44 MCG, 3 IN 1 WEEKS, SUBCUTANEOUS
     Route: 058
     Dates: start: 20070723, end: 20071201
  2. GLUCOPHAGE ER (METFORMIN) [Concomitant]
  3. PLAVIX [Concomitant]
  4. PENTOXIFYLLIN (PENTOXIFYLLINE) [Concomitant]
  5. AMARYL [Concomitant]
  6. NEXIUM [Concomitant]
  7. ZETIA [Concomitant]
  8. FLOMAX (MORNIFLUMATE) [Concomitant]
  9. PROPO-N/APAP (PROPACET) [Concomitant]
  10. AMBIEN [Concomitant]
  11. NEURONTIN [Concomitant]
  12. CENTRUM SILVER (CENTRUM SILVER) [Concomitant]
  13. SENNA (SENNA ALEXANDRINA) [Concomitant]
  14. ADDERALL XR 10 [Concomitant]

REACTIONS (7)
  - ABASIA [None]
  - ASTHENIA [None]
  - BRONCHOSCOPY ABNORMAL [None]
  - DYSSTASIA [None]
  - HAEMOPTYSIS [None]
  - LYMPHADENOPATHY [None]
  - NON-SMALL CELL LUNG CANCER STAGE III [None]
